FAERS Safety Report 24805845 (Version 1)
Quarter: 2025Q1

REPORT INFORMATION
  Report Type: Spontaneous
  Country: US (occurrence: US)
  Receive Date: 20250103
  Receipt Date: 20250103
  Transmission Date: 20250408
  Serious: Yes (Hospitalization, Other)
  Sender: FRESENIUS KABI
  Company Number: US-FreseniusKabi-FK202500082

PATIENT
  Age: 73 Year
  Sex: Male

DRUGS (2)
  1. PROPOFOL [Suspect]
     Active Substance: PROPOFOL
     Indication: Endoscopy
  2. PROPOFOL [Suspect]
     Active Substance: PROPOFOL
     Indication: Colonoscopy

REACTIONS (1)
  - Drug-induced liver injury [Recovering/Resolving]
